FAERS Safety Report 6222548-X (Version None)
Quarter: 2009Q2

REPORT INFORMATION
  Report Type: 
  Country: None (occurrence: None)
  Receive Date: 20090609
  Receipt Date: 20090609
  Transmission Date: 20091009
  Serious: Yes (Other)
  Sender: FDA-Public Use
  Company Number: None

PATIENT
  Age: 61 Year
  Sex: Female
  Weight: 91.6266 kg

DRUGS (1)
  1. LEVOTHROID [Suspect]
     Indication: HYPOTHYROIDISM
     Dosage: 1X PER DAY PO
     Route: 048
     Dates: start: 20090301, end: 20090601

REACTIONS (1)
  - PRODUCT QUALITY ISSUE [None]
